FAERS Safety Report 7020582-3 (Version None)
Quarter: 2010Q3

REPORT INFORMATION
  Report Type: 
  Country: None (occurrence: None)
  Receive Date: 20100929
  Receipt Date: 20100927
  Transmission Date: 20110219
  Serious: Yes (Hospitalization)
  Sender: FDA-Public Use
  Company Number: A0790989A

PATIENT
  Age: 41 Year
  Sex: Male

DRUGS (1)
  1. AVANDIA [Suspect]
     Indication: TYPE 2 DIABETES MELLITUS
     Dosage: 4MG PER DAY
     Route: 048
     Dates: start: 19990401, end: 20070501

REACTIONS (5)
  - ANGINA PECTORIS [None]
  - CARDIAC DISORDER [None]
  - DYSPNOEA [None]
  - FATIGUE [None]
  - OEDEMA [None]
